FAERS Safety Report 9790281 (Version 1)
Quarter: 2013Q4

REPORT INFORMATION
  Report Type: Spontaneous
  Country: DE (occurrence: DE)
  Receive Date: 20131231
  Receipt Date: 20131231
  Transmission Date: 20140711
  Serious: Yes (Hospitalization, Other)
  Sender: FDA-Public Use
  Company Number: DE-ABBVIE-13P-062-1184107-00

PATIENT
  Age: 17 Year
  Sex: Female

DRUGS (2)
  1. VALPROATE SODIUM [Suspect]
     Indication: EPILEPSY
     Route: 048
     Dates: start: 20090620, end: 20091123
  2. BETAMETHASONE [Concomitant]
     Indication: PRODUCT USED FOR UNKNOWN INDICATION
     Dates: start: 20091106, end: 20091107

REACTIONS (4)
  - Placenta praevia haemorrhage [Unknown]
  - Amniotic infection syndrome of Blane [Unknown]
  - Oligohydramnios [Unknown]
  - Pregnancy with contraceptive device [Unknown]
